FAERS Safety Report 16811853 (Version 1)
Quarter: 2019Q3

REPORT INFORMATION
  Report Type: Spontaneous
  Country: GR (occurrence: GR)
  Receive Date: 20190916
  Receipt Date: 20190916
  Transmission Date: 20191005
  Serious: Yes (Hospitalization)
  Sender: FDA-Public Use
  Company Number: GR-ASTRAZENECA-2019SF31230

PATIENT
  Age: 94 Year
  Sex: Male

DRUGS (7)
  1. DAXAS [Suspect]
     Active Substance: ROFLUMILAST
     Indication: CHRONIC OBSTRUCTIVE PULMONARY DISEASE
     Route: 048
  2. BIOSONIDE [Concomitant]
     Dosage: 1 MG/2 ML
  3. AZAPIN [Concomitant]
     Dosage: 2 TABLETS SIMULTANEOUSLY WITH DAXAS
  4. LASIX [Concomitant]
     Active Substance: FUROSEMIDE
     Dosage: ONCE DAILY
  5. DEMOREN [Concomitant]
     Active Substance: ALBUTEROL SULFATE\IPRATROPIUM BROMIDE
     Dosage: (0,5+2,5) MG/2,5 ML ONCE DAILY
  6. ESPOZA [Concomitant]
  7. VASTAREL [Concomitant]
     Active Substance: TRIMETAZIDINE DIHYDROCHLORIDE
     Dosage: 35.0MG UNKNOWN

REACTIONS (3)
  - Insomnia [Not Recovered/Not Resolved]
  - Weight decreased [Not Recovered/Not Resolved]
  - Thrombosis [Unknown]

NARRATIVE: CASE EVENT DATE: 20190505
